FAERS Safety Report 20659478 (Version 1)
Quarter: 2022Q1

REPORT INFORMATION
  Report Type: Spontaneous
  Country: US (occurrence: None)
  Receive Date: 20220331
  Receipt Date: 20220331
  Transmission Date: 20220423
  Serious: Yes (Death)
  Sender: FDA-Public Use
  Company Number: None

PATIENT
  Sex: Female

DRUGS (1)
  1. FORTEO [Suspect]
     Active Substance: TERIPARATIDE
     Indication: Osteoporosis
     Dosage: 620 MCG/2.48ML? ?INJECT 20 MCG UNDER THE SKIN (SUBCUTANEOUS INJECTION) EVERY DAY. REFRIGERATE AND DI
     Route: 058
     Dates: start: 20210819, end: 202203

REACTIONS (1)
  - Death [None]
